FAERS Safety Report 6185037-7 (Version None)
Quarter: 2009Q2

REPORT INFORMATION
  Report Type: 
  Country: None (occurrence: None)
  Receive Date: 20090511
  Receipt Date: 20090501
  Transmission Date: 20091009
  Serious: Yes (Other)
  Sender: FDA-Public Use
  Company Number: CA-JNJFOC-20090500612

PATIENT
  Age: 7 Year
  Sex: Male

DRUGS (2)
  1. CHILDRENS TYLENOL COLD AND COUGH NIGHTTIME APPLE [Suspect]
     Indication: RHINORRHOEA
     Route: 048
  2. CHILDRENS TYLENOL COLD AND COUGH NIGHTTIME APPLE [Suspect]
     Indication: COUGH
     Route: 048

REACTIONS (1)
  - HALLUCINATION [None]
